FAERS Safety Report 8394100 (Version 3)
Quarter: 2012Q4

REPORT INFORMATION
  Report Type: 
  Country: CA (occurrence: CA)
  Receive Date: 20120207
  Receipt Date: 20121104
  Transmission Date: 20130627
  Serious: Yes (Other)
  Sender: FDA-Public Use
  Company Number: PHHY2009CA24254

PATIENT
  Sex: Male

DRUGS (1)
  1. ZOMETA [Suspect]
     Indication: PROSTATE CANCER
     Dosage: 4 mg, every 4 weeks
     Route: 042
     Dates: start: 20090220, end: 20090601

REACTIONS (13)
  - Arthritis [Unknown]
  - General physical health deterioration [Unknown]
  - Blood pressure decreased [Unknown]
  - Haematocrit decreased [Unknown]
  - Haemoglobin decreased [Unknown]
  - Red blood cell count decreased [Unknown]
  - Glomerular filtration rate decreased [Unknown]
  - Blood pressure systolic increased [Unknown]
  - Back pain [Unknown]
  - Decreased appetite [Unknown]
  - Pain in extremity [Recovering/Resolving]
  - Blood creatinine increased [Unknown]
  - Blood calcium decreased [Unknown]
